FAERS Safety Report 24096594 (Version 12)
Quarter: 2025Q2

REPORT INFORMATION
  Report Type: Report from Study
  Country: GB (occurrence: GB)
  Receive Date: 20240716
  Receipt Date: 20250627
  Transmission Date: 20250717
  Serious: Yes (Hospitalization, Other)
  Sender: ABBVIE
  Company Number: GB-CELLTRION INC.-2023GB019658

PATIENT
  Age: 88 Year
  Sex: Female
  Weight: 88 kg

DRUGS (36)
  1. ADALIMUMAB [Suspect]
     Active Substance: ADALIMUMAB
     Indication: Colitis
     Route: 058
  2. ADALIMUMAB [Suspect]
     Active Substance: ADALIMUMAB
     Route: 058
  3. ADALIMUMAB [Suspect]
     Active Substance: ADALIMUMAB
     Route: 058
  4. REMICADE [Suspect]
     Active Substance: INFLIXIMAB
     Indication: Colitis
     Dosage: 10 MILLIGRAM/KILOGRAM, Q8WK
     Route: 042
  5. REMICADE [Suspect]
     Active Substance: INFLIXIMAB
     Indication: Colitis
     Dosage: 10 MILLIGRAM/KILOGRAM, Q8WK
     Route: 042
  6. REMICADE [Suspect]
     Active Substance: INFLIXIMAB
     Indication: Colitis
     Dosage: 7 MILLIGRAM/KILOGRAM, QWK
     Route: 042
     Dates: start: 20200407, end: 20230501
  7. REMICADE [Suspect]
     Active Substance: INFLIXIMAB
     Indication: Colitis
     Dosage: 10 MILLIGRAM/KILOGRAM, Q8WK
     Route: 042
  8. REMICADE [Suspect]
     Active Substance: INFLIXIMAB
     Indication: Colitis
     Dosage: 10 MILLIGRAM/KILOGRAM, Q8WK
     Route: 042
  9. REMICADE [Suspect]
     Active Substance: INFLIXIMAB
     Indication: Colitis
     Dosage: 10 MILLIGRAM/KILOGRAM, Q8WK
     Route: 042
  10. REMICADE [Suspect]
     Active Substance: INFLIXIMAB
     Indication: Colitis
     Dosage: 10 MILLIGRAM/KILOGRAM, Q8WK
     Route: 042
     Dates: start: 20200407, end: 20230501
  11. REMICADE [Suspect]
     Active Substance: INFLIXIMAB
     Indication: Colitis
     Dosage: 10 MILLIGRAM/KILOGRAM
     Route: 042
  12. REMICADE [Suspect]
     Active Substance: INFLIXIMAB
     Indication: Colitis
     Dosage: 10 MILLIGRAM/KILOGRAM
     Route: 042
  13. REMICADE [Suspect]
     Active Substance: INFLIXIMAB
     Indication: Colitis
     Dosage: 10 MILLIGRAM/KILOGRAM
     Route: 042
  14. REMICADE [Suspect]
     Active Substance: INFLIXIMAB
     Indication: Colitis
     Dosage: 10 MILLIGRAM/KILOGRAM, Q8WK
     Route: 042
  15. METHOTREXATE [Suspect]
     Active Substance: METHOTREXATE
     Indication: Colitis
     Dosage: 10 MILLIGRAM, Q8WK?PATIENT ROA: INTRAVENOUS DRIP
     Route: 041
  16. INFLIXIMAB [Suspect]
     Active Substance: INFLIXIMAB
     Indication: Colitis
     Dosage: 10 MILLIGRAM/KILOGRAM, Q8WK
     Route: 065
     Dates: start: 20200407, end: 20230501
  17. INFLIXIMAB [Suspect]
     Active Substance: INFLIXIMAB
     Indication: Colitis
     Dosage: 10 MILLIGRAM/KILOGRAM, Q8WK
     Route: 065
  18. INFLIXIMAB [Suspect]
     Active Substance: INFLIXIMAB
     Indication: Colitis
     Dosage: 10 MILLIGRAM/KILOGRAM, Q8WK
     Route: 065
  19. INFLIXIMAB [Suspect]
     Active Substance: INFLIXIMAB
     Indication: Colitis
     Dosage: 10 MILLIGRAM/KILOGRAM, Q8WK
     Route: 065
  20. INFLIXIMAB [Suspect]
     Active Substance: INFLIXIMAB
     Indication: Colitis
     Dosage: 10 MILLIGRAM/KILOGRAM
     Route: 065
  21. INFLIXIMAB [Suspect]
     Active Substance: INFLIXIMAB
     Indication: Colitis
     Dosage: 10 MILLIGRAM/KILOGRAM, Q8WK
     Route: 065
  22. INFLIXIMAB [Suspect]
     Active Substance: INFLIXIMAB
     Indication: Colitis
     Dosage: 10 MILLIGRAM/KILOGRAM, Q8WK
     Route: 065
  23. INFLIXIMAB [Suspect]
     Active Substance: INFLIXIMAB
     Indication: Colitis
     Dosage: 10 MILLIGRAM/KILOGRAM, Q8WK
     Route: 065
     Dates: start: 20200407, end: 20200407
  24. INFLIXIMAB [Suspect]
     Active Substance: INFLIXIMAB
     Indication: Colitis
     Route: 065
     Dates: start: 20200407, end: 20230501
  25. INFLIXIMAB [Suspect]
     Active Substance: INFLIXIMAB
     Indication: Colitis
     Route: 065
     Dates: start: 20200407, end: 20230501
  26. INFLIXIMAB [Suspect]
     Active Substance: INFLIXIMAB
     Indication: Colitis
     Dosage: 7 MG/KG, QW (10 MILLIGRAM/KILOGRAM, Q8WK) (CUMULATIVE DOSE: 1119MG/KG)/7 MILLIGRAM/KILOGRAM, QWK (10
     Route: 065
     Dates: start: 20200407, end: 20230501
  27. INFLIXIMAB [Suspect]
     Active Substance: INFLIXIMAB
     Indication: Colitis
     Route: 065
  28. INFLIXIMAB [Suspect]
     Active Substance: INFLIXIMAB
     Indication: Colitis
     Route: 065
  29. INFLIXIMAB [Suspect]
     Active Substance: INFLIXIMAB
     Indication: Colitis
     Route: 065
  30. INFLIXIMAB [Suspect]
     Active Substance: INFLIXIMAB
     Indication: Colitis
     Route: 065
  31. INFLIXIMAB [Suspect]
     Active Substance: INFLIXIMAB
     Indication: Colitis
     Route: 065
  32. INFLIXIMAB [Suspect]
     Active Substance: INFLIXIMAB
     Indication: Colitis
     Route: 065
  33. INFLIXIMAB [Suspect]
     Active Substance: INFLIXIMAB
     Indication: Colitis
     Route: 065
  34. INFLIXIMAB [Suspect]
     Active Substance: INFLIXIMAB
     Indication: Colitis
     Route: 065
     Dates: start: 20200407, end: 20230501
  35. INFLIXIMAB [Suspect]
     Active Substance: INFLIXIMAB
     Indication: Colitis
     Dosage: 10 MG/KG, Q8W (10 MILLIGRAM/KILOGRAM, Q8WK)/ CUMULATIVE DOSE 1119 MG/KG
     Route: 065
     Dates: start: 20200407, end: 20230501
  36. METHOTREXATE SODIUM [Suspect]
     Active Substance: METHOTREXATE SODIUM
     Indication: Colitis

REACTIONS (8)
  - Arthritis bacterial [Recovering/Resolving]
  - Streptococcal infection [Recovering/Resolving]
  - Sepsis [Recovering/Resolving]
  - Streptococcal sepsis [Recovering/Resolving]
  - Product use in unapproved indication [Unknown]
  - Off label use [Unknown]
  - Overdose [Unknown]
  - Arthralgia [Recovering/Resolving]

NARRATIVE: CASE EVENT DATE: 20230501
